FAERS Safety Report 6761371-4 (Version None)
Quarter: 2010Q2

REPORT INFORMATION
  Report Type: 
  Country: None (occurrence: None)
  Receive Date: 20100607
  Receipt Date: 20100531
  Transmission Date: 20101027
  Serious: Yes (Life-Threatening, Hospitalization)
  Sender: FDA-Public Use
  Company Number: FR-1180630

PATIENT
  Age: 36 Year
  Sex: Female

DRUGS (1)
  1. AZOPT [Suspect]
     Indication: GLAUCOMA
     Dosage: 1 GTT, OPHTHALMIC
     Route: 047

REACTIONS (1)
  - DRUG HYPERSENSITIVITY [None]
